FAERS Safety Report 7014725-5 (Version None)
Quarter: 2010Q3

REPORT INFORMATION
  Report Type: 
  Country: None (occurrence: None)
  Receive Date: 20100927
  Receipt Date: 20100915
  Transmission Date: 20110219
  Serious: Yes (Other)
  Sender: FDA-Public Use
  Company Number: PHHY2010JP43261

PATIENT
  Age: 68 Year
  Sex: Male

DRUGS (1)
  1. CYCLOSPORINE [Suspect]
     Indication: RENAL TRANSPLANT
     Dosage: UNK

REACTIONS (6)
  - DIABETIC ENTEROPATHY [None]
  - IMMUNOSUPPRESSANT DRUG LEVEL INCREASED [None]
  - MALABSORPTION [None]
  - NEPHROPATHY TOXIC [None]
  - RENAL IMPAIRMENT [None]
  - URINE OUTPUT DECREASED [None]
